FAERS Safety Report 11557849 (Version 1)
Quarter: 2015Q3

REPORT INFORMATION
  Report Type: Report from Study
  Country: BR (occurrence: BR)
  Receive Date: 20150927
  Receipt Date: 20150927
  Transmission Date: 20151125
  Serious: Yes (Hospitalization, Other)
  Sender: FDA-Public Use
  Company Number: BR-ROCHE-1629228

PATIENT
  Sex: Female
  Weight: 54 kg

DRUGS (7)
  1. MELOXICAM. [Concomitant]
     Active Substance: MELOXICAM
     Dosage: ONE TABLET AT NIGHT
     Route: 065
  2. FOLIC ACID. [Concomitant]
     Active Substance: FOLIC ACID
     Dosage: ONE TABLET TWICE A WEEK
     Route: 065
  3. METICORTEN [Concomitant]
     Active Substance: PREDNISONE
     Indication: RHEUMATOID ARTHRITIS
     Route: 065
  4. METHOTREXATE [Concomitant]
     Active Substance: METHOTREXATE
     Dosage: ONE TABLET A WEEK
     Route: 065
  5. NAPRIX [Concomitant]
     Active Substance: RAMIPRIL
     Dosage: HALF A UNIT IN THE MORNING AND AT NIGHT
     Route: 065
  6. ACTEMRA [Suspect]
     Active Substance: TOCILIZUMAB
     Indication: RHEUMATOID ARTHRITIS
     Dosage: ON 01/JUL/2015, SHE RECEIVE RECENT DOSE OF TOCILIZUMAB
     Route: 042
     Dates: start: 20150311
  7. ALDACTONE (BRAZIL) [Concomitant]
     Route: 065

REACTIONS (6)
  - Myocarditis [Unknown]
  - Cardiac failure [Unknown]
  - Mitral valve disease [Unknown]
  - Respiratory failure [Unknown]
  - Pulmonary congestion [Unknown]
  - Blood pressure abnormal [Unknown]
